FAERS Safety Report 6525900-8 (Version None)
Quarter: 2009Q4

REPORT INFORMATION
  Report Type: 
  Country: None (occurrence: None)
  Receive Date: 20091222
  Receipt Date: 20091209
  Transmission Date: 20100525
  Serious: Yes (Hospitalization)
  Sender: FDA-Public Use
  Company Number: DSA_26943_2005

PATIENT
  Age: 83 Year
  Sex: Female

DRUGS (6)
  1. ENALAPRIL MALEATE [Suspect]
     Indication: MYOCARDIAL INFARCTION
     Dosage: (5 MG BID)
  2. ENALAPRIL MALEATE [Suspect]
     Indication: MYOCARDIAL INFARCTION
     Dosage: (5 MG)
  3. ENALAPRIL MALEATE [Suspect]
     Indication: MYOCARDIAL INFARCTION
     Dosage: (5 MG)
  4. IMDUR [Suspect]
     Dosage: (30 MG 1X/MORNING ORAL)
     Route: 048
  5. FUROSEMIDE [Concomitant]
  6. ASPIRIN [Concomitant]

REACTIONS (6)
  - DIZZINESS [None]
  - DRUG INTERACTION [None]
  - FALL [None]
  - HYPOTENSION [None]
  - LOSS OF CONSCIOUSNESS [None]
  - SYNCOPE [None]
